FAERS Safety Report 12655196 (Version 2)
Quarter: 2017Q3

REPORT INFORMATION
  Report Type: Spontaneous
  Country: US (occurrence: US)
  Receive Date: 20160816
  Receipt Date: 20170921
  Transmission Date: 20171127
  Serious: Yes (Other)
  Sender: FDA-Public Use
  Company Number: US-TEVA-682601USA

PATIENT
  Age: 77 Year
  Sex: Female

DRUGS (11)
  1. POTASSIUM CL [Concomitant]
     Active Substance: POTASSIUM CHLORIDE
     Dosage: 8 MILLIEQUIVALENTS DAILY;
  2. CARVEDILOL. [Suspect]
     Active Substance: CARVEDILOL
     Indication: HYPERTENSION
     Dates: start: 20160616
  3. CARVEDILOL. [Suspect]
     Active Substance: CARVEDILOL
     Indication: HEADACHE
  4. POTASSIUM CL [Concomitant]
     Active Substance: POTASSIUM CHLORIDE
     Route: 065
     Dates: start: 20160301
  5. FLUTICASONE. [Concomitant]
     Active Substance: FLUTICASONE
     Route: 065
     Dates: start: 20160315
  6. LASIX [Concomitant]
     Active Substance: FUROSEMIDE
     Dosage: 20 MILLIGRAM DAILY;
     Route: 065
     Dates: start: 20150807
  7. SIMVASTATIN. [Concomitant]
     Active Substance: SIMVASTATIN
     Dosage: 20 MILLIGRAM DAILY;
     Route: 065
     Dates: start: 20150603
  8. AMLODIPINE [Concomitant]
     Active Substance: AMLODIPINE BESYLATE
     Dosage: IN PM
     Route: 065
     Dates: start: 20150909
  9. POTASSIUM CL [Concomitant]
     Active Substance: POTASSIUM CHLORIDE
     Dosage: 10MEQ
     Route: 065
     Dates: start: 20150827, end: 20151203
  10. AMLODIPINE [Concomitant]
     Active Substance: AMLODIPINE BESYLATE
     Dosage: IN AM
     Route: 065
     Dates: start: 20150909
  11. CHLORHEXIDINE [Concomitant]
     Active Substance: CHLORHEXIDINE
     Dosage: 0.12 LIQ
     Route: 065
     Dates: start: 20160216

REACTIONS (2)
  - Hypertension [Recovered/Resolved]
  - Product substitution issue [Unknown]

NARRATIVE: CASE EVENT DATE: 20160620
